FAERS Safety Report 23760307 (Version 1)
Quarter: 2024Q2

REPORT INFORMATION
  Report Type: Spontaneous
  Country: FR (occurrence: FR)
  Receive Date: 20240419
  Receipt Date: 20240419
  Transmission Date: 20240716
  Serious: Yes (Other)
  Sender: FDA-Public Use
  Company Number: FR-AFSSAPS-RE2024000076

PATIENT
  Age: 44 Year
  Sex: Male
  Weight: 82.6 kg

DRUGS (7)
  1. ATORVASTATIN [Suspect]
     Active Substance: ATORVASTATIN
     Indication: Atheroembolism
     Dosage: 80 MILLIGRAM, DAILY
     Route: 048
     Dates: start: 20210406, end: 20210428
  2. ATORVASTATIN [Suspect]
     Active Substance: ATORVASTATIN
     Dosage: 20 MILLIGRAM, DAILY
     Route: 048
     Dates: start: 202008, end: 20210406
  3. CLOPIDOGREL [Suspect]
     Active Substance: CLOPIDOGREL BISULFATE
     Indication: Atheroembolism
     Dosage: 75 MILLIGRAM, DAILY
     Route: 048
     Dates: start: 202008, end: 20220428
  4. ASPIRIN [Suspect]
     Active Substance: ASPIRIN
     Indication: Atheroembolism
     Dosage: 100 MILLIGRAM, DAILY
     Route: 048
  5. LIPTRUZET [Suspect]
     Active Substance: ATORVASTATIN CALCIUM\EZETIMIBE
     Indication: Atheroembolism
     Dosage: 1 DOSAGE FORM, DAILY
     Route: 048
  6. COLCHICINE [Suspect]
     Active Substance: COLCHICINE
     Indication: Atheroembolism
     Dosage: 1 MILLIGRAM, DAILY
     Route: 048
     Dates: end: 20220428
  7. XARELTO [Suspect]
     Active Substance: RIVAROXABAN
     Indication: Atheroembolism
     Dosage: 20 MILLIGRAM, DAILY
     Route: 048
     Dates: start: 202008, end: 20200925

REACTIONS (1)
  - Erectile dysfunction [Not Recovered/Not Resolved]
